FAERS Safety Report 12252687 (Version 2)
Quarter: 2016Q2

REPORT INFORMATION
  Report Type: Spontaneous
  Country: US (occurrence: US)
  Receive Date: 20160411
  Receipt Date: 20160414
  Transmission Date: 20160815
  Serious: No
  Sender: FDA-Public Use
  Company Number: US-PFIZER INC-2016174882

PATIENT
  Age: 78 Year
  Sex: Female
  Weight: 59 kg

DRUGS (1)
  1. SUTENT [Suspect]
     Active Substance: SUNITINIB MALATE
     Indication: CHRONIC LYMPHOCYTIC LEUKAEMIA
     Dosage: 50 MG ONE TIME DAILY 4 WEEKS ON AND 2 WEEKS OFF
     Route: 048
     Dates: start: 20160211

REACTIONS (5)
  - Fatigue [Recovered/Resolved]
  - Bone pain [Recovered/Resolved]
  - Dry mouth [Recovered/Resolved]
  - Product use issue [Unknown]
  - Dysgeusia [Recovered/Resolved]

NARRATIVE: CASE EVENT DATE: 20160216
